FAERS Safety Report 12334981 (Version 1)
Quarter: 2016Q2

REPORT INFORMATION
  Report Type: Spontaneous
  Country: FR (occurrence: FR)
  Receive Date: 20160504
  Receipt Date: 20160504
  Transmission Date: 20160815
  Serious: Yes (Life-Threatening, Hospitalization)
  Sender: FDA-Public Use
  Company Number: FR-SA-2016SA086210

PATIENT
  Age: 60 Year
  Sex: Female

DRUGS (2)
  1. TOPALGIC LP [Suspect]
     Active Substance: TRAMADOL
     Route: 048
     Dates: start: 20160313, end: 20160313
  2. ZOLPIDEM [Suspect]
     Active Substance: ZOLPIDEM\ZOLPIDEM TARTRATE
     Route: 048
     Dates: start: 20160313, end: 20160313

REACTIONS (5)
  - Rhabdomyolysis [Recovering/Resolving]
  - Respiratory disorder [Recovering/Resolving]
  - Metabolic acidosis [Recovering/Resolving]
  - Renal tubular necrosis [Recovering/Resolving]
  - Vomiting [Recovering/Resolving]

NARRATIVE: CASE EVENT DATE: 20160313
